FAERS Safety Report 8956471 (Version 1)
Quarter: 2012Q4

REPORT INFORMATION
  Report Type: 
  Country: FR (occurrence: FR)
  Receive Date: 20121210
  Receipt Date: 20121210
  Transmission Date: 20130627
  Serious: Yes (Other)
  Sender: FDA-Public Use
  Company Number: FR-SANOFI-AVENTIS-2012SA087063

PATIENT
  Age: 73 Year
  Sex: Female

DRUGS (2)
  1. PLAQUENIL [Suspect]
     Indication: LUPUS SYNDROME
     Dosage: 2 tablets one dayand 1 tablet the second day
     Route: 065
     Dates: start: 20120915
  2. CORTANCYL [Suspect]
     Indication: LUPUS SYNDROME
     Route: 065
     Dates: start: 20120915

REACTIONS (2)
  - Cataract [Not Recovered/Not Resolved]
  - Muscle spasms [Not Recovered/Not Resolved]
